FAERS Safety Report 21548516 (Version 1)
Quarter: 2022Q4

REPORT INFORMATION
  Report Type: Report from Study
  Country: ES (occurrence: ES)
  Receive Date: 20221103
  Receipt Date: 20221103
  Transmission Date: 20230113
  Serious: Yes (Hospitalization)
  Sender: FDA-Public Use
  Company Number: None

PATIENT
  Age: 82 Year
  Sex: Male

DRUGS (6)
  1. ASPIRIN [Interacting]
     Active Substance: ASPIRIN
     Indication: Ischaemic cardiomyopathy
     Dosage: (176A), 100 MG FREQUENCY: 1 DAY
     Route: 065
     Dates: start: 2011, end: 20220913
  2. DICLOFENAC [Interacting]
     Active Substance: DICLOFENAC
     Indication: Gout
     Dosage: UNIT DOSE: 150 MG, FREQUENCY: 1 DAY, (745A)
     Route: 065
     Dates: start: 20220909, end: 20220913
  3. PREDNISONE [Interacting]
     Active Substance: PREDNISONE
     Indication: Gout
     Dosage: UNIT DOSE: 30 MG, FREQUENCY 1 DAYS, DACORTIN 30 TABLETS
     Route: 065
     Dates: start: 20220909, end: 20220913
  4. ATORVASTATIN [Concomitant]
     Active Substance: ATORVASTATIN
     Indication: Dyslipidaemia
     Dosage: UNIT DOSE: 40 MG, FREQUENCY: 1 DAYS, ATORVASTATIN (7400A)
     Dates: start: 20110120
  5. METFORMIN [Concomitant]
     Active Substance: METFORMIN HYDROCHLORIDE
     Indication: Diabetes mellitus
     Dosage: METFORMIN (1359A), UNIT DOSE: 1.7 GRAM, FREQUENCY: 1 DAYS
     Dates: start: 20130111, end: 20220913
  6. ENALAPRIL MALEATE\HYDROCHLOROTHIAZIDE [Concomitant]
     Active Substance: ENALAPRIL MALEATE\HYDROCHLOROTHIAZIDE
     Indication: Hypertension
     Dates: start: 20151002, end: 20220913

REACTIONS (2)
  - Lower gastrointestinal haemorrhage [Recovered/Resolved]
  - Drug interaction [Unknown]

NARRATIVE: CASE EVENT DATE: 20220913
